FAERS Safety Report 6495307-0 (Version None)
Quarter: 2009Q4

REPORT INFORMATION
  Report Type: 
  Country: None (occurrence: None)
  Receive Date: 20091214
  Receipt Date: 20090601
  Transmission Date: 20100525
  Serious: No
  Sender: FDA-Public Use
  Company Number: US-BRISTOL-MYERS SQUIBB COMPANY-14639017

PATIENT
  Age: 47 Year
  Sex: Female

DRUGS (1)
  1. ABILIFY [Suspect]
     Dosage: STARTED ON 5MG INCREASED TO 10MG FEB09 INCREASED TO 15MG DOSE REDUCED TO 7.5MG
     Route: 048
     Dates: start: 20050101

REACTIONS (2)
  - CHILLS [None]
  - TARDIVE DYSKINESIA [None]
